FAERS Safety Report 9873368 (Version 10)
Quarter: 2015Q2

REPORT INFORMATION
  Report Type: Report from Study
  Country: CA (occurrence: CA)
  Receive Date: 20140206
  Receipt Date: 20150427
  Transmission Date: 20150821
  Serious: Yes (Other)
  Sender: FDA-Public Use
  Company Number: CA-ROCHE-1343658

PATIENT
  Age: 55 Year
  Sex: Female

DRUGS (11)
  1. RITUXAN [Suspect]
     Active Substance: RITUXIMAB
     Indication: RHEUMATOID ARTHRITIS
     Dosage: FREQUENCY:  DAY 1 AND DAY 15
     Route: 042
     Dates: start: 20071018, end: 20110919
  2. MELOXICAM. [Concomitant]
     Active Substance: MELOXICAM
  3. HYDROXYCHLOROQUINE [Concomitant]
     Active Substance: HYDROXYCHLOROQUINE
  4. VITAMIN C [Concomitant]
     Active Substance: ASCORBIC ACID
  5. FOLIC ACID. [Concomitant]
     Active Substance: FOLIC ACID
  6. METHYLPREDNISOLONE. [Concomitant]
     Active Substance: METHYLPREDNISOLONE
     Indication: PREMEDICATION
     Route: 042
     Dates: start: 20110829, end: 20110919
  7. ACTEMRA [Suspect]
     Active Substance: TOCILIZUMAB
     Indication: RHEUMATOID ARTHRITIS
     Route: 042
     Dates: start: 20140306
  8. METHOTREXATE [Concomitant]
     Active Substance: METHOTREXATE
     Route: 048
  9. DIPHENHYDRAMINE [Concomitant]
     Active Substance: DIPHENHYDRAMINE
     Indication: PREMEDICATION
     Route: 048
     Dates: start: 20110829, end: 20110919
  10. ACETAMINOPHEN. [Concomitant]
     Active Substance: ACETAMINOPHEN
     Indication: PREMEDICATION
     Route: 048
     Dates: start: 20110829, end: 20110919
  11. VITAMIN B50 [Concomitant]

REACTIONS (12)
  - Carpal tunnel syndrome [Unknown]
  - Ill-defined disorder [Recovered/Resolved]
  - Fall [Unknown]
  - Rash [Unknown]
  - Weight fluctuation [Not Recovered/Not Resolved]
  - Arthralgia [Unknown]
  - Drug effect decreased [Unknown]
  - Mobility decreased [Unknown]
  - Pharyngeal mass [Not Recovered/Not Resolved]
  - Viral infection [Recovering/Resolving]
  - Impaired healing [Not Recovered/Not Resolved]
  - Nasopharyngitis [Recovering/Resolving]

NARRATIVE: CASE EVENT DATE: 2009
